FAERS Safety Report 8320062-9 (Version None)
Quarter: 2012Q2

REPORT INFORMATION
  Report Type: 
  Country: None (occurrence: None)
  Receive Date: 20120427
  Receipt Date: 20120417
  Transmission Date: 20120825
  Serious: Yes (Life-Threatening, Other)
  Sender: FDA-Public Use
  Company Number: CHPA2012TR009331

PATIENT

DRUGS (4)
  1. ACETAMINOPHEN [Suspect]
     Dosage: UNK, UNK
     Route: 065
  2. METFORMIN HCL [Suspect]
     Dosage: UNK, UNK
     Route: 065
  3. THERAFLU UNKNOWN [Suspect]
     Dosage: UNK, UNK
     Route: 065
  4. CEFPODOXIME PROXETIL [Suspect]
     Dosage: UNK, UNK
     Route: 065

REACTIONS (2)
  - SUICIDE ATTEMPT [None]
  - DEPRESSION [None]
